FAERS Safety Report 18724238 (Version 1)
Quarter: 2021Q1

REPORT INFORMATION
  Report Type: Spontaneous
  Country: US (occurrence: US)
  Receive Date: 20210109
  Receipt Date: 20210109
  Transmission Date: 20210419
  Serious: No
  Sender: FDA-Public Use
  Company Number: None

PATIENT
  Age: 65 Year
  Sex: Female
  Weight: 103.5 kg

DRUGS (1)
  1. RECLAST [Suspect]
     Active Substance: ZOLEDRONIC ACID
     Indication: OSTEOPOROSIS
     Dosage: ?          OTHER FREQUENCY:NA;?
     Route: 042
     Dates: start: 20201029, end: 20201029

REACTIONS (3)
  - Necrosis [None]
  - Loss of consciousness [None]
  - Rhabdomyolysis [None]

NARRATIVE: CASE EVENT DATE: 20201030
